FAERS Safety Report 7825767-1 (Version None)
Quarter: 2011Q4

REPORT INFORMATION
  Report Type: 
  Country: None (occurrence: None)
  Receive Date: 20111019
  Receipt Date: 20111013
  Transmission Date: 20120403
  Serious: Yes (Life-Threatening, Hospitalization, Other)
  Sender: FDA-Public Use
  Company Number: PHHY2011CA89978

PATIENT
  Sex: Female

DRUGS (3)
  1. INDAPAMIDE [Concomitant]
     Indication: BLOOD PRESSURE
     Dosage: 2.5 MG,
     Dates: start: 20100101
  2. MAVIK [Concomitant]
     Dosage: 4 MG,
     Dates: start: 20090101
  3. RASILEZ [Suspect]
     Indication: HYPERTENSION
     Dosage: 300 MG,
     Route: 048
     Dates: start: 20100325, end: 20110826

REACTIONS (4)
  - BLOOD CREATININE INCREASED [None]
  - BLOOD POTASSIUM INCREASED [None]
  - VOMITING [None]
  - SYNCOPE [None]
